FAERS Safety Report 4319662-2 (Version None)
Quarter: 2004Q1

REPORT INFORMATION
  Report Type: 
  Country: None (occurrence: None)
  Receive Date: 20040316
  Receipt Date: 20040301
  Transmission Date: 20041129
  Serious: No
  Sender: FDA-Public Use
  Company Number: 04H-163-0252343-00

PATIENT

DRUGS (7)
  1. MORPHINE SULFATE [Suspect]
     Indication: POSTOPERATIVE ANALGESIA
     Dosage: SEE IMAGE
     Route: 040
  2. MORPHINE SUL INJ [Suspect]
     Indication: MAINTENANCE OF ANAESTHESIA
     Dosage: 0.1 MG/KG
  3. MIDAZOLAM HCL [Concomitant]
  4. PROPOFOL [Concomitant]
  5. ISOFLURANE [Concomitant]
  6. FENTANYL [Concomitant]
  7. PLACEBO [Concomitant]

REACTIONS (2)
  - POST PROCEDURAL NAUSEA [None]
  - POST PROCEDURAL VOMITING [None]
